FAERS Safety Report 9424760 (Version 2)
Quarter: 2013Q3

REPORT INFORMATION
  Report Type: Spontaneous
  Country: JP (occurrence: JP)
  Receive Date: 20130729
  Receipt Date: 20130927
  Transmission Date: 20140515
  Serious: Yes (Other)
  Sender: FDA-Public Use
  Company Number: JP-PFIZER INC-2013218555

PATIENT
  Age: 62 Year
  Sex: Male

DRUGS (2)
  1. HALCION [Suspect]
     Dosage: 0.25 MG, DAILY
     Route: 048
     Dates: start: 2010
  2. FLIVAS [Concomitant]
     Dosage: 25 MG, DAILY
     Route: 048
     Dates: start: 2010

REACTIONS (1)
  - Pancreatitis [Recovered/Resolved]
